FAERS Safety Report 9890899 (Version 1)
Quarter: 2014Q1

REPORT INFORMATION
  Report Type: Spontaneous
  Country: US (occurrence: None)
  Receive Date: 20140210
  Receipt Date: 20140210
  Transmission Date: 20141002
  Serious: Yes (Other)
  Sender: FDA-Public Use
  Company Number: None

PATIENT
  Age: 57 Year
  Sex: Female
  Weight: 67.13 kg

DRUGS (4)
  1. IODINE CONTRAST [Suspect]
     Indication: POSITRON EMISSION TOMOGRAM
     Dosage: ONE DOSE  ONCE
     Dates: start: 20140122, end: 20140122
  2. IODINE CONTRAST [Suspect]
     Indication: PULMONARY MASS
     Dosage: ONE DOSE  ONCE
     Dates: start: 20140122, end: 20140122
  3. P.E.T.SCANNER [Suspect]
  4. VENTOLIN [Concomitant]

REACTIONS (13)
  - Blister [None]
  - Erythema [None]
  - Pruritus [None]
  - Confusional state [None]
  - Chills [None]
  - Feeling hot [None]
  - Alopecia [None]
  - Nausea [None]
  - Diarrhoea [None]
  - Faeces discoloured [None]
  - Muscle spasms [None]
  - Asthenia [None]
  - Dyspnoea exertional [None]
